FAERS Safety Report 4547966-7 (Version None)
Quarter: 2005Q1

REPORT INFORMATION
  Report Type: 
  Country: None (occurrence: None)
  Receive Date: 20050110
  Receipt Date: 20041117
  Transmission Date: 20050727
  Serious: Yes (Other)
  Sender: FDA-Public Use
  Company Number: UY-SOLVAY-00304004115

PATIENT
  Age: 13739 Day
  Sex: Female

DRUGS (1)
  1. DUMIROX [Suspect]
     Indication: DEPRESSION
     Dosage: DAILY DOSE: 100 MILLIGRAM(S)
     Route: 048
     Dates: start: 20040401, end: 20041011

REACTIONS (4)
  - ABORTION SPONTANEOUS [None]
  - ALANINE AMINOTRANSFERASE INCREASED [None]
  - DRUG EXPOSURE DURING PREGNANCY [None]
  - PREGNANCY [None]
